FAERS Safety Report 20853244 (Version 2)
Quarter: 2022Q2

REPORT INFORMATION
  Report Type: Spontaneous
  Country: JP (occurrence: JP)
  Receive Date: 20220520
  Receipt Date: 20220607
  Transmission Date: 20220720
  Serious: No
  Sender: FDA-Public Use
  Company Number: JP-PFIZER INC-202200709628

PATIENT
  Age: 81 Year
  Sex: Female

DRUGS (18)
  1. PAXLOVID [Suspect]
     Active Substance: NIRMATRELVIR\RITONAVIR
     Indication: COVID-19 treatment
     Dosage: NIRMATRELVIR 1T/ONCE AND RITONAVIR UNKNOWN, 2X/DAY AFTER BREAKFAST AND DINNER
     Dates: start: 20220418, end: 20220423
  2. AMIODARONE [Suspect]
     Active Substance: AMIODARONE
     Dosage: UNK
  3. CERCINE [Suspect]
     Active Substance: DIAZEPAM
     Indication: Insomnia
     Dosage: 1 DF, WHEN SLEEPLESSNESS
  4. SENNOSIDES A AND B [Concomitant]
     Active Substance: SENNOSIDES A AND B
     Indication: Constipation
     Dosage: 1 DF, WHEN CONSTIPATION
  5. MAGNESIUM OXIDE [Concomitant]
     Active Substance: MAGNESIUM OXIDE
     Indication: Constipation
     Dosage: 1 DF, WHEN CONSTIPATION
  6. ACETAMINOPHEN [Concomitant]
     Active Substance: ACETAMINOPHEN
     Indication: Pyrexia
     Dosage: 1 DF, WHEN PYREXIA
  7. JARDIANCE [Concomitant]
     Active Substance: EMPAGLIFLOZIN
     Dosage: 1T, 1X IN THE MORNING
  8. LANSOPRAZOLE [Concomitant]
     Active Substance: LANSOPRAZOLE
     Dosage: 1 DF, 1X/DAY, IN THE MORNING
  9. REBAMIPIDE [Concomitant]
     Active Substance: REBAMIPIDE
     Dosage: 3 DF, 3X/DAY
  10. DIGOXIN [Concomitant]
     Active Substance: DIGOXIN
     Dosage: 1T, 1X IN THE MORNING
  11. FERROUS FUMARATE [Concomitant]
     Active Substance: FERROUS FUMARATE
     Dosage: 1C 1X IN THE MORNING
  12. ENALAPRIL [Concomitant]
     Active Substance: ENALAPRIL
     Dosage: 1X IN THE MORNING
  13. TORSEMIDE [Concomitant]
     Active Substance: TORSEMIDE
     Dosage: 1T, 1X IN THE MORNING
  14. SAMSCA [Concomitant]
     Active Substance: TOLVAPTAN
     Dosage: 0.5T, 1X IN THE MORNING
  15. ELIQUIS [Concomitant]
     Active Substance: APIXABAN
     Dosage: 2T, 2X/DAY
  16. VILDAGLIPTIN [Concomitant]
     Active Substance: VILDAGLIPTIN
     Dosage: 2T, 2X/DAY
  17. LINAGLIPTIN [Concomitant]
     Active Substance: LINAGLIPTIN
     Dosage: UNK
  18. INSULIN ASPART [Concomitant]
     Active Substance: INSULIN ASPART
     Dosage: 4-4-4

REACTIONS (2)
  - Off label use [Unknown]
  - Contraindicated product administered [Unknown]
